FAERS Safety Report 24717530 (Version 1)
Quarter: 2024Q4

REPORT INFORMATION
  Report Type: Spontaneous
  Country: CH (occurrence: CH)
  Receive Date: 20241210
  Receipt Date: 20241210
  Transmission Date: 20250115
  Serious: No
  Sender: BLUEPRINT MEDICINES
  Company Number: CH-Blueprint Medicines Corporation-SP-CH-2024-002526

PATIENT
  Sex: Female

DRUGS (1)
  1. AVAPRITINIB [Suspect]
     Active Substance: AVAPRITINIB
     Indication: Product used for unknown indication
     Dosage: 100 MILLIGRAMS AND 50 MILLIGRAMS
     Route: 065

REACTIONS (1)
  - Off label use [Unknown]
